FAERS Safety Report 23228569 (Version 1)
Quarter: 2023Q4

REPORT INFORMATION
  Report Type: Spontaneous
  Country: CN (occurrence: CN)
  Receive Date: 20231125
  Receipt Date: 20231125
  Transmission Date: 20240110
  Serious: Yes (Hospitalization, Other)
  Sender: FDA-Public Use
  Company Number: CN-STRIDES ARCOLAB LIMITED-2023SP017378

PATIENT
  Age: 57 Year
  Sex: Male

DRUGS (2)
  1. TACROLIMUS [Suspect]
     Active Substance: TACROLIMUS
     Indication: Prophylaxis against graft versus host disease
     Dosage: UNK
     Route: 065
     Dates: start: 20201126
  2. LINEZOLID [Suspect]
     Active Substance: LINEZOLID
     Indication: Tuberculosis
     Dosage: 0.6 GRAM, EVERY 12 HRS
     Route: 065
     Dates: start: 20211110, end: 2021

REACTIONS (6)
  - Gingival bleeding [Unknown]
  - Thrombocytopenia [Recovered/Resolved]
  - Pneumonia klebsiella [Recovered/Resolved]
  - Tuberculous pleurisy [Recovered/Resolved]
  - Tuberculosis [Recovered/Resolved]
  - Chronic graft versus host disease [Unknown]

NARRATIVE: CASE EVENT DATE: 20211101
